FAERS Safety Report 8058413-5 (Version None)
Quarter: 2012Q1

REPORT INFORMATION
  Report Type: 
  Country: None (occurrence: None)
  Receive Date: 20120120
  Receipt Date: 20120110
  Transmission Date: 20120608
  Serious: Yes (Hospitalization)
  Sender: FDA-Public Use
  Company Number: US-MYLANLABS-2012S1000896

PATIENT
  Age: 64 Year
  Sex: Male

DRUGS (5)
  1. FISH OIL [Concomitant]
     Indication: SUPPLEMENTATION THERAPY
  2. LIPITOR [Suspect]
     Indication: BLOOD CHOLESTEROL INCREASED
  3. VITAMIN TAB [Concomitant]
     Indication: SUPPLEMENTATION THERAPY
  4. DIAZEPAM [Suspect]
     Indication: ANXIETY
  5. SOTALOL HCL [Suspect]
     Indication: ATRIAL FIBRILLATION

REACTIONS (1)
  - MALAISE [None]
